FAERS Safety Report 21380826 (Version 2)
Quarter: 2022Q4

REPORT INFORMATION
  Report Type: Spontaneous
  Country: US (occurrence: US)
  Receive Date: 20220927
  Receipt Date: 20221227
  Transmission Date: 20230112
  Serious: No
  Sender: FDA-Public Use
  Company Number: US-ASTELLAS-2022US028653

PATIENT
  Age: 80 Year
  Sex: Female

DRUGS (1)
  1. PADCEV [Suspect]
     Active Substance: ENFORTUMAB VEDOTIN-EJFV
     Indication: Product used for unknown indication
     Dosage: UNK, UNKNOWN FREQ. (12 CYCLES)
     Route: 065

REACTIONS (1)
  - Rash vesicular [Unknown]
